FAERS Safety Report 17858847 (Version 2)
Quarter: 2020Q2

REPORT INFORMATION
  Report Type: Report from Study
  Country: None (occurrence: US)
  Receive Date: 20200604
  Receipt Date: 20200605
  Transmission Date: 20200714
  Serious: No
  Sender: FDA-Public Use
  Company Number: US-US WORLDMEDS, LLC-USW202003-000570

PATIENT
  Age: 70 Year
  Sex: Male
  Weight: 90.71 kg

DRUGS (6)
  1. APOKYN [Suspect]
     Active Substance: APOMORPHINE HYDROCHLORIDE
     Dates: start: 20200323
  2. TIGAN [Concomitant]
     Active Substance: TRIMETHOBENZAMIDE HYDROCHLORIDE
  3. APOKYN [Suspect]
     Active Substance: APOMORPHINE HYDROCHLORIDE
     Indication: PARKINSON^S DISEASE
     Route: 058
     Dates: start: 20190516
  4. APOKYN [Suspect]
     Active Substance: APOMORPHINE HYDROCHLORIDE
     Dosage: 3 ML CARTRIDGE 1 EA CART
     Route: 058
  5. DRONABINOL. [Suspect]
     Active Substance: DRONABINOL
     Dosage: UNKNOWN
  6. TIGAN [Concomitant]
     Active Substance: TRIMETHOBENZAMIDE HYDROCHLORIDE

REACTIONS (5)
  - Loss of consciousness [Unknown]
  - Nausea [Recovered/Resolved]
  - Thinking abnormal [Unknown]
  - Vomiting [Recovered/Resolved]
  - Rhinitis [Not Recovered/Not Resolved]

NARRATIVE: CASE EVENT DATE: 201906
